FAERS Safety Report 5108685-1 (Version None)
Quarter: 2006Q3

REPORT INFORMATION
  Report Type: 
  Country: None (occurrence: None)
  Receive Date: 20060915
  Receipt Date: 20060905
  Transmission Date: 20061208
  Serious: Yes (Other)
  Sender: FDA-Public Use
  Company Number: 2006107692

PATIENT
  Age: 61 Year
  Sex: Male

DRUGS (2)
  1. NEURONTIN [Suspect]
     Indication: NEURALGIA
     Dosage: 100 MG (100 MG, 1 IN 1 D), ORAL
     Route: 048
     Dates: start: 20051201
  2. LAMOTRIGINE [Concomitant]

REACTIONS (3)
  - BEDRIDDEN [None]
  - FATIGUE [None]
  - SOMNOLENCE [None]
